FAERS Safety Report 9292962 (Version 2)
Quarter: 2013Q3

REPORT INFORMATION
  Report Type: Report from Study
  Country: DE (occurrence: DE)
  Receive Date: 20130516
  Receipt Date: 20130702
  Transmission Date: 20140515
  Serious: Yes (Hospitalization)
  Sender: FDA-Public Use
  Company Number: DE-CELGENEUS-062-21660-13050924

PATIENT
  Age: 47 Year
  Sex: Female
  Weight: 58 kg

DRUGS (4)
  1. ABRAXANE [Suspect]
     Indication: BREAST CANCER
     Route: 041
     Dates: start: 20130228
  2. ABRAXANE [Suspect]
     Route: 041
     Dates: start: 20130328
  3. CYCLOPHOSPHAMID [Suspect]
     Indication: BREAST CANCER
     Route: 041
     Dates: start: 20130411
  4. CYCLOPHOSPHAMID [Suspect]
     Route: 041
     Dates: start: 20130425

REACTIONS (3)
  - Pancytopenia [Recovered/Resolved]
  - General physical health deterioration [Recovered/Resolved]
  - Leukopenia [Recovered/Resolved]
